FAERS Safety Report 4832114-6 (Version None)
Quarter: 2005Q4

REPORT INFORMATION
  Report Type: 
  Country: None (occurrence: None)
  Receive Date: 20051114
  Receipt Date: 20051110
  Transmission Date: 20060501
  Serious: Yes (Disabling)
  Sender: FDA-Public Use
  Company Number: B0399524A

PATIENT
  Age: 42 Year
  Sex: Male

DRUGS (4)
  1. ZIDOVUDINE [Suspect]
     Indication: HIV INFECTION
  2. LAMIVUDINE [Suspect]
     Indication: HIV INFECTION
  3. LOPINAVIR + RITONAVIR (LOPINAVIR + RITONAVIR) [Suspect]
     Indication: HIV INFECTION
  4. CIDOFOVIR [Concomitant]

REACTIONS (3)
  - CEREBELLAR SYNDROME [None]
  - IMMUNE RECONSTITUTION SYNDROME [None]
  - NUCLEAR MAGNETIC RESONANCE IMAGING BRAIN ABNORMAL [None]
